FAERS Safety Report 6484775-6 (Version None)
Quarter: 2009Q4

REPORT INFORMATION
  Report Type: 
  Country: None (occurrence: None)
  Receive Date: 20091203
  Receipt Date: 20091119
  Transmission Date: 20100525
  Serious: Yes (Other)
  Sender: FDA-Public Use
  Company Number: CLOF-1000777

PATIENT
  Age: 6 Year
  Sex: Female

DRUGS (1)
  1. CLOFARABINE (CLOFARABINE) SOLUTION FOR INFUSION [Suspect]
     Indication: ACUTE LYMPHOCYTIC LEUKAEMIA
     Dosage: 52 MG/M2, QDX5, INTRAVENOUS; 52 MG/M2, QDX5, INTRAVENOUS; 52 MG/M2, QDX5, INTRAVENOUS
     Route: 042

REACTIONS (6)
  - ASPERGILLOMA [None]
  - BONE MARROW FAILURE [None]
  - BRONCHOPULMONARY ASPERGILLOSIS [None]
  - HEPATIC FUNCTION ABNORMAL [None]
  - LEUKOPENIA [None]
  - RASH [None]
